FAERS Safety Report 8299140-9 (Version None)
Quarter: 2012Q2

REPORT INFORMATION
  Report Type: 
  Country: None (occurrence: None)
  Receive Date: 20120419
  Receipt Date: 20120416
  Transmission Date: 20120825
  Serious: Yes (Other)
  Sender: FDA-Public Use
  Company Number: US-ABBOTT-12P-163-0925971-00

PATIENT
  Sex: Male
  Weight: 108.96 kg

DRUGS (6)
  1. DIOVAN [Concomitant]
     Indication: HYPERTENSION
  2. TOPROL-XL [Concomitant]
     Indication: HYPERTENSION
  3. FOLIC ACID [Concomitant]
     Indication: VITAMIN SUPPLEMENTATION
  4. DDAVP [Concomitant]
     Indication: HYPOTHALAMO-PITUITARY DISORDER
  5. ASPIRIN [Concomitant]
     Indication: CARDIAC DISORDER
     Route: 048
     Dates: start: 20020101
  6. ANDROGEL [Suspect]
     Indication: PITUITARY TUMOUR BENIGN
     Dosage: 4 PUMPS PER DAY
     Dates: start: 20040101

REACTIONS (3)
  - MELANOCYTIC NAEVUS [None]
  - SKIN CANCER [None]
  - APPLICATION SITE DRYNESS [None]
